FAERS Safety Report 16039203 (Version 1)
Quarter: 2019Q1

REPORT INFORMATION
  Report Type: Spontaneous
  Country: US (occurrence: US)
  Receive Date: 20190206
  Receipt Date: 20190206
  Transmission Date: 20190418
  Serious: No
  Sender: FDA-Public Use
  Company Number: None

PATIENT
  Age: 49 Year
  Sex: Female

DRUGS (1)
  1. REMICADE [Suspect]
     Active Substance: INFLIXIMAB
     Dates: start: 201811, end: 201901

REACTIONS (2)
  - Drug intolerance [None]
  - Therapy cessation [None]

NARRATIVE: CASE EVENT DATE: 20190206
